FAERS Safety Report 9214463 (Version 1)
Quarter: 2013Q2

REPORT INFORMATION
  Report Type: Spontaneous
  Country: US (occurrence: US)
  Receive Date: 20130405
  Receipt Date: 20130405
  Transmission Date: 20140414
  Serious: Yes (Other)
  Sender: FDA-Public Use
  Company Number: US-ASTRAZENECA-2013SE20182

PATIENT
  Age: 55 Year
  Sex: Female
  Weight: 79.4 kg

DRUGS (5)
  1. NEXIUM [Suspect]
     Indication: REFLUX LARYNGITIS
     Route: 048
     Dates: start: 2009
  2. LEXAPRO [Concomitant]
     Indication: PANIC ATTACK
     Route: 048
     Dates: start: 2010
  3. NORVASC [Concomitant]
     Indication: HYPERTENSION
     Route: 048
     Dates: start: 2009
  4. KEPRA [Concomitant]
     Indication: CONVULSION
     Route: 048
     Dates: start: 200901
  5. DEXAMETHASONE [Concomitant]
     Dates: start: 201101, end: 201106

REACTIONS (7)
  - Neuroblastoma [Unknown]
  - Musculoskeletal pain [Unknown]
  - Reflux laryngitis [Unknown]
  - Magnesium deficiency [Recovered/Resolved]
  - Arthralgia [Unknown]
  - Myalgia [Unknown]
  - Intentional drug misuse [Unknown]
